FAERS Safety Report 26208347 (Version 1)
Quarter: 2025Q4

REPORT INFORMATION
  Report Type: Spontaneous
  Country: US (occurrence: None)
  Receive Date: 20251228
  Receipt Date: 20251228
  Transmission Date: 20260118
  Serious: Yes (Death)
  Sender: FDA-CTU
  Company Number: None

PATIENT
  Sex: Female

DRUGS (6)
  1. BOTOX [Suspect]
     Active Substance: ONABOTULINUMTOXINA
     Indication: Torticollis
     Dosage: OTHER STRENGTH : 100UNIT;?OTHER ROUTE : INJECTION;
     Route: 050
     Dates: start: 20180207
  2. ASPIRIN LOW TAB 81MG EC [Concomitant]
  3. BOTOX   INJ 100UNIT [Concomitant]
  4. MACROBID CAP 100MG [Concomitant]
  5. METOPROLOL POW TARTRATE [Concomitant]
  6. SALINE SOL [Concomitant]

REACTIONS (1)
  - Death [None]
